FAERS Safety Report 4864404-5 (Version None)
Quarter: 2005Q4

REPORT INFORMATION
  Report Type: 
  Country: None (occurrence: None)
  Receive Date: 20051221
  Receipt Date: 20051221
  Transmission Date: 20060501
  Serious: No
  Sender: FDA-Public Use
  Company Number: None

PATIENT
  Age: 46 Year
  Sex: Female
  Weight: 104.7809 kg

DRUGS (1)
  1. RISPERIDONE [Suspect]
     Indication: PSYCHOTIC DISORDER
     Dosage: 2MG PO
     Route: 048

REACTIONS (1)
  - BLOOD PROLACTIN INCREASED [None]
